FAERS Safety Report 5105433-6 (Version None)
Quarter: 2006Q3

REPORT INFORMATION
  Report Type: 
  Country: None (occurrence: None)
  Receive Date: 20060915
  Receipt Date: 20060908
  Transmission Date: 20061208
  Serious: Yes (Hospitalization)
  Sender: FDA-Public Use
  Company Number: 2006PK01852

PATIENT
  Age: 14 Year
  Sex: Female

DRUGS (5)
  1. SEROQUEL [Suspect]
  2. RISPERDAL [Suspect]
  3. TAVOR [Concomitant]
  4. DIPIPERON [Concomitant]
  5. DIGESTIVES [Concomitant]
     Indication: DYSPEPSIA

REACTIONS (6)
  - ANXIETY [None]
  - EAR PAIN [None]
  - HEADACHE [None]
  - OESOPHAGEAL PAIN [None]
  - PAIN IN EXTREMITY [None]
  - TONGUE SPASM [None]
